FAERS Safety Report 18791738 (Version 4)
Quarter: 2022Q1

REPORT INFORMATION
  Report Type: Spontaneous
  Country: US (occurrence: US)
  Receive Date: 20210126
  Receipt Date: 20220302
  Transmission Date: 20220423
  Serious: Yes (Other)
  Sender: FDA-Public Use
  Company Number: US-JNJFOC-20210135618

PATIENT
  Age: 39 Year
  Sex: Female

DRUGS (11)
  1. ELMIRON [Suspect]
     Active Substance: PENTOSAN POLYSULFATE SODIUM
     Indication: Cystitis interstitial
     Route: 048
     Dates: start: 2012
  2. ELMIRON [Suspect]
     Active Substance: PENTOSAN POLYSULFATE SODIUM
     Route: 048
     Dates: start: 20130101, end: 20171201
  3. PAXIL [Concomitant]
     Active Substance: PAROXETINE HYDROCHLORIDE
     Indication: Anxiety
     Route: 065
     Dates: start: 201307, end: 202007
  4. AMBIEN [Concomitant]
     Active Substance: ZOLPIDEM TARTRATE
     Indication: Sleep disorder therapy
     Route: 065
     Dates: start: 201301, end: 201702
  5. FLAGYL [Concomitant]
     Active Substance: METRONIDAZOLE\METRONIDAZOLE HYDROCHLORIDE
     Indication: Cystitis interstitial
     Route: 065
     Dates: start: 201307, end: 202002
  6. CLONAZEPAM [Concomitant]
     Active Substance: CLONAZEPAM
     Indication: Anxiety
     Route: 065
     Dates: start: 201510
  7. OMEPRAZOLE [Concomitant]
     Active Substance: OMEPRAZOLE
     Indication: Gastrooesophageal reflux disease
     Route: 065
     Dates: start: 201610, end: 202004
  8. PAROXETINE [Concomitant]
     Active Substance: PAROXETINE
     Indication: Depression
     Route: 065
     Dates: start: 20130210
  9. MONTELUKAST [Concomitant]
     Active Substance: MONTELUKAST SODIUM
     Indication: Asthma
     Route: 065
     Dates: start: 2019, end: 2019
  10. FLUCONAZOLE [Concomitant]
     Active Substance: FLUCONAZOLE
     Indication: Fungal infection
     Route: 065
     Dates: start: 2011
  11. AMITRIPTYLINE [Concomitant]
     Active Substance: AMITRIPTYLINE
     Indication: Depression
     Route: 065
     Dates: start: 2016, end: 2017

REACTIONS (5)
  - Retinal degeneration [Not Recovered/Not Resolved]
  - Maculopathy [Recovered/Resolved]
  - Retinal dystrophy [Unknown]
  - Off label use [Unknown]
  - Product use issue [Unknown]

NARRATIVE: CASE EVENT DATE: 20130101
